FAERS Safety Report 11755489 (Version 1)
Quarter: 2015Q4

REPORT INFORMATION
  Report Type: Spontaneous
  Country: JP (occurrence: JP)
  Receive Date: 20151119
  Receipt Date: 20151119
  Transmission Date: 20160304
  Serious: Yes (Other)
  Sender: FDA-Public Use
  Company Number: JP-MYLANLABS-2015M1040378

PATIENT

DRUGS (2)
  1. MERCAPTOPURINE. [Suspect]
     Active Substance: MERCAPTOPURINE
     Indication: COLITIS ULCERATIVE
     Dosage: 0.91 MG/KG PER DAY
     Route: 065
  2. TIOGUANINE [Suspect]
     Active Substance: THIOGUANINE ANHYDROUS
     Indication: COLITIS ULCERATIVE
     Dosage: 676 PMOL/8 X 108 RBC
     Route: 065

REACTIONS (1)
  - Pancreatitis [Unknown]
